FAERS Safety Report 9458593 (Version 1)
Quarter: 2013Q3

REPORT INFORMATION
  Report Type: Spontaneous
  Country: US (occurrence: None)
  Receive Date: 20130813
  Receipt Date: 20130813
  Transmission Date: 20140515
  Serious: Yes (Hospitalization)
  Sender: FDA-Public Use
  Company Number: None

PATIENT
  Age: 62 Year
  Sex: Male

DRUGS (2)
  1. XOLAIR [Suspect]
     Indication: HYPERSENSITIVITY
     Dosage: 125MG (1.0ML) AT 3 SUBQ SITES Q2WKS SUBQ
     Dates: start: 20130703
  2. XOLAIR [Suspect]
     Indication: ASTHMA
     Dosage: 125MG (1.0ML) AT 3 SUBQ SITES Q2WKS SUBQ
     Dates: start: 20130703

REACTIONS (5)
  - Dyspnoea [None]
  - Swelling face [None]
  - Swelling [None]
  - Heart rate irregular [None]
  - Skin discolouration [None]
